FAERS Safety Report 11231230 (Version 2)
Quarter: 2015Q3

REPORT INFORMATION
  Report Type: Spontaneous
  Country: JP (occurrence: JP)
  Receive Date: 20150701
  Receipt Date: 20150710
  Transmission Date: 20151125
  Serious: Yes (Other)
  Sender: FDA-Public Use
  Company Number: JP-PFIZER INC-2015213169

PATIENT
  Age: 79 Year
  Sex: Female

DRUGS (4)
  1. VASOLAN [Concomitant]
     Active Substance: VERAPAMIL HYDROCHLORIDE
     Dosage: UNK
  2. UNISIA LD [Concomitant]
     Dosage: UNK
  3. XALATAN [Suspect]
     Active Substance: LATANOPROST
     Dosage: UNK
     Route: 047
  4. NOVOCAINE [Suspect]
     Active Substance: PROCAINE
     Indication: TOOTH EXTRACTION
     Dosage: UNK

REACTIONS (2)
  - Dysarthria [Unknown]
  - Tooth extraction [Unknown]
